FAERS Safety Report 6656280-5 (Version None)
Quarter: 2010Q1

REPORT INFORMATION
  Report Type: 
  Country: None (occurrence: None)
  Receive Date: 20100329
  Receipt Date: 20100318
  Transmission Date: 20100710
  Serious: Yes (Disabling)
  Sender: FDA-Public Use
  Company Number: GXKR2010GB02099

PATIENT
  Age: 92 Year
  Sex: Female

DRUGS (2)
  1. ALENDRONIC ACID (NGX) [Suspect]
     Indication: OSTEOPOROSIS
     Dosage: 70 MG, UNK
     Route: 048
  2. CALCEOS [Concomitant]

REACTIONS (5)
  - AMNESIA [None]
  - CONFUSIONAL STATE [None]
  - DEMENTIA [None]
  - HALLUCINATION, AUDITORY [None]
  - URINARY TRACT INFECTION [None]
